FAERS Safety Report 23591267 (Version 1)
Quarter: 2024Q1

REPORT INFORMATION
  Report Type: Spontaneous
  Country: CN (occurrence: CN)
  Receive Date: 20240304
  Receipt Date: 20240304
  Transmission Date: 20240410
  Serious: Yes (Other)
  Sender: FDA-Public Use
  Company Number: CN-009507513-2402CHN009197

PATIENT
  Age: 70 Year
  Sex: Male
  Weight: 75 kg

DRUGS (2)
  1. NOXAFIL [Suspect]
     Active Substance: POSACONAZOLE
     Indication: Candida infection
     Dosage: 300 MG, TWICE A DAY ON 11-FEB-2024 ( REPORTED AS DOUBLED ON THE FIRST DAY)
     Route: 048
     Dates: start: 20240211, end: 20240211
  2. NOXAFIL [Suspect]
     Active Substance: POSACONAZOLE
     Indication: Pneumonia
     Dosage: 300 MG, QD, ORAL
     Route: 048
     Dates: start: 20240212, end: 20240217

REACTIONS (2)
  - Drug-induced liver injury [Not Recovered/Not Resolved]
  - Product use in unapproved indication [Unknown]

NARRATIVE: CASE EVENT DATE: 20240211
